FAERS Safety Report 9837734 (Version 1)
Quarter: 2014Q1

REPORT INFORMATION
  Report Type: Spontaneous
  Country: FR (occurrence: FR)
  Receive Date: 20140123
  Receipt Date: 20140123
  Transmission Date: 20141002
  Serious: Yes (Hospitalization)
  Sender: FDA-Public Use
  Company Number: FR-009507513-1401FRA005541

PATIENT
  Age: 42 Year
  Sex: Female

DRUGS (3)
  1. IMPLANON [Suspect]
     Dosage: UNK
     Route: 058
     Dates: start: 200209, end: 200409
  2. TRINORDIOL [Suspect]
     Dosage: 1 DF, CYCLICAL
     Route: 048
     Dates: start: 1989, end: 1991
  3. ETHINYL ESTRADIOL\NORETHINDRONE [Suspect]
     Dosage: 1 DF, CYCLICAL
     Dates: start: 1994, end: 1998

REACTIONS (1)
  - Hepatic adenoma [Not Recovered/Not Resolved]
